FAERS Safety Report 14973855 (Version 1)
Quarter: 2018Q3

REPORT INFORMATION
  Report Type: Spontaneous
  Country: None (occurrence: US)
  Receive Date: 20180605
  Receipt Date: 20180605
  Transmission Date: 20181010
  Serious: No
  Sender: FDA-Public Use
  Company Number: US-AKRON, INC.-2049006

PATIENT
  Age: 82 Year
  Sex: Female

DRUGS (1)
  1. CLOBETASOL PROPIONATE GEL [Suspect]
     Active Substance: CLOBETASOL PROPIONATE
     Route: 061

REACTIONS (6)
  - Burning sensation [Unknown]
  - Mental impairment [Unknown]
  - Rash generalised [Unknown]
  - Pruritus [Unknown]
  - Rash erythematous [None]
  - Poor quality sleep [Unknown]
